FAERS Safety Report 8693163 (Version 6)
Quarter: 2013Q4

REPORT INFORMATION
  Report Type: Spontaneous
  Country: US (occurrence: US)
  Receive Date: 20120730
  Receipt Date: 20131119
  Transmission Date: 20140711
  Serious: Yes (Other)
  Sender: FDA-Public Use
  Company Number: US-ROCHE-1061222

PATIENT
  Age: 28 Year
  Sex: Male
  Weight: 95.34 kg

DRUGS (4)
  1. ACCUTANE [Suspect]
     Indication: ACNE
     Route: 048
     Dates: start: 1997, end: 1998
  2. ACCUTANE [Suspect]
     Route: 048
     Dates: start: 199807, end: 1999
  3. ACCUTANE [Suspect]
     Route: 048
     Dates: start: 200007, end: 200011
  4. ACCUTANE [Suspect]
     Route: 048
     Dates: start: 200101, end: 200104

REACTIONS (7)
  - Colitis ulcerative [Unknown]
  - Depression [Unknown]
  - Inflammatory bowel disease [Unknown]
  - Intestinal haemorrhage [Unknown]
  - Large intestine polyp [Unknown]
  - Rectal polyp [Unknown]
  - Irritable bowel syndrome [Unknown]
